FAERS Safety Report 20231220 (Version 1)
Quarter: 2021Q4

REPORT INFORMATION
  Report Type: Other
  Country: US (occurrence: None)
  Receive Date: 20211227
  Receipt Date: 20211227
  Transmission Date: 20220303
  Serious: Yes (Death)
  Sender: FDA-Public Use
  Company Number: US-ROCHE-2984674

PATIENT
  Age: 58 Year
  Sex: Male

DRUGS (1)
  1. RITUXIMAB [Suspect]
     Active Substance: RITUXIMAB
     Indication: Cutaneous lupus erythematosus
     Route: 042

REACTIONS (1)
  - Progressive multifocal leukoencephalopathy [Fatal]
